FAERS Safety Report 8010844-5 (Version None)
Quarter: 2011Q4

REPORT INFORMATION
  Report Type: 
  Country: None (occurrence: None)
  Receive Date: 20111228
  Receipt Date: 20111220
  Transmission Date: 20120403
  Serious: Yes (Disabling)
  Sender: FDA-Public Use
  Company Number: PHHY2011GB110689

PATIENT
  Sex: Male

DRUGS (19)
  1. PRAVASTATIN [Suspect]
     Dosage: 40 MG, UNK
  2. ABDEC [Concomitant]
     Dosage: 0.6 ML, UNK
  3. AMLODIPINE [Concomitant]
     Dosage: 5 MG, QD
  4. ASPIRIN [Concomitant]
     Dosage: 75 MG, QD
  5. CETRABEN EMOLLIENT [Concomitant]
     Dosage: UNK UKN, UNK
  6. CLARITHROMYCIN [Concomitant]
     Dosage: UNK UKN, UNK
  7. DOMPERIDONE [Concomitant]
     Dosage: 10 MG, QD
  8. IRBESARTAN [Concomitant]
     Dosage: 300 MG, QD
  9. PRAVASTATIN [Suspect]
     Indication: HYPERCHOLESTEROLAEMIA
     Dosage: UNK UKN, UNK
     Dates: end: 20101203
  10. LEVETIRACETAM [Concomitant]
     Dosage: 750 MG, UNK
  11. LACTULOSE [Concomitant]
     Dosage: 10 ML, UNK
  12. GALANTAMINE HYDROBROMIDE [Concomitant]
     Dosage: 24 MG, QD
  13. OMEPRAZOLE [Concomitant]
     Dosage: 20 MG, QD
  14. SCOPODERM [Concomitant]
     Dosage: 1 DF, UNK
  15. PHENYTOIN [Concomitant]
     Dosage: 100 MG, QD
  16. LEVOTHYROXINE SODIUM [Concomitant]
     Dosage: UNK UKN, UNK
  17. TRIMETHOPRIM [Concomitant]
     Dosage: 1 DF, QD
  18. THIAMINE HCL [Concomitant]
     Dosage: 100 MG, QD
  19. VITAMIN B COMPOUND [Concomitant]
     Dosage: 1 DF, BID

REACTIONS (4)
  - DYSPHONIA [None]
  - UNRESPONSIVE TO STIMULI [None]
  - COMMUNICATION DISORDER [None]
  - DYSPHAGIA [None]
